FAERS Safety Report 14680025 (Version 1)
Quarter: 2018Q1

REPORT INFORMATION
  Report Type: Spontaneous
  Country: CN (occurrence: CN)
  Receive Date: 20180326
  Receipt Date: 20180326
  Transmission Date: 20180509
  Serious: Yes (Hospitalization, Other)
  Sender: FDA-Public Use
  Company Number: CN-TELIGENT, INC-IGIL20180159

PATIENT
  Age: 37 Year
  Sex: Female
  Weight: 56 kg

DRUGS (2)
  1. LIDOCAINE. [Concomitant]
     Active Substance: LIDOCAINE
     Indication: LOCAL ANAESTHESIA
     Dosage: 200 MG
     Route: 058
  2. CEFUROXIME SODIUM. [Suspect]
     Active Substance: CEFUROXIME SODIUM
     Indication: PROPHYLAXIS
     Dosage: 1500 MG
     Route: 042

REACTIONS (21)
  - Headache [Recovered/Resolved]
  - Rales [Recovered/Resolved]
  - Systolic dysfunction [Recovered/Resolved]
  - Nausea [Recovered/Resolved]
  - Pruritus [Recovered/Resolved]
  - Productive cough [Recovered/Resolved]
  - Dyspnoea [Recovered/Resolved]
  - Acute myocardial infarction [Recovered/Resolved]
  - Cardiac failure [Recovering/Resolving]
  - Vomiting [Recovered/Resolved]
  - Anaphylactic shock [Recovered/Resolved]
  - Rash erythematous [Recovered/Resolved]
  - Pulmonary oedema [Recovered/Resolved]
  - Kounis syndrome [Recovered/Resolved]
  - Arteriospasm coronary [Recovered/Resolved]
  - Pallor [Recovered/Resolved]
  - Ventricular tachycardia [Recovered/Resolved]
  - Sputum discoloured [Recovered/Resolved]
  - Foaming at mouth [Recovered/Resolved]
  - Vertigo [Recovered/Resolved]
  - Myocardial ischaemia [Recovered/Resolved]
